FAERS Safety Report 7138577-8 (Version None)
Quarter: 2010Q4

REPORT INFORMATION
  Report Type: 
  Country: None (occurrence: None)
  Receive Date: 20101118
  Receipt Date: 20101108
  Transmission Date: 20110411
  Serious: Yes (Hospitalization)
  Sender: FDA-Public Use
  Company Number: 2010JP006601

PATIENT
  Sex: Female
  Weight: 1.7 kg

DRUGS (4)
  1. PROGRAF [Suspect]
     Indication: RENAL TRANSPLANT
     Dosage: MG, BID, TRANSPLACENTAL
     Route: 062
  2. PREDNISOLONE [Concomitant]
  3. RITODRINE HYDROCHLORIDE [Concomitant]
  4. UNASYN (SULTAMICILLIN TOSILATE) FORMULATION UNKNOWN [Concomitant]

REACTIONS (4)
  - MATERNAL DRUGS AFFECTING FOETUS [None]
  - PREMATURE BABY [None]
  - PREMATURE LABOUR [None]
  - SMALL FOR DATES BABY [None]
